FAERS Safety Report 20162434 (Version 2)
Quarter: 2022Q1

REPORT INFORMATION
  Report Type: Spontaneous
  Country: US (occurrence: US)
  Receive Date: 20211208
  Receipt Date: 20220124
  Transmission Date: 20220423
  Serious: No
  Sender: FDA-Public Use
  Company Number: US-Vifor (International) Inc.-VIT-2021-09058

PATIENT
  Age: 59 Year
  Sex: Male
  Weight: 113.50 kg

DRUGS (12)
  1. VELTASSA [Suspect]
     Active Substance: PATIROMER
     Indication: Hyperkalaemia
     Dosage: PACKET
     Route: 048
     Dates: start: 2021
  2. VELTASSA [Suspect]
     Active Substance: PATIROMER
     Dosage: PACKET
     Route: 048
     Dates: start: 20211110
  3. AMLODIPINE/ROSUVASTATIN [Concomitant]
  4. FIASP [Concomitant]
     Active Substance: INSULIN ASPART
  5. FUROSEMIDE [Concomitant]
     Active Substance: FUROSEMIDE
  6. GABAPENTIN [Concomitant]
     Active Substance: GABAPENTIN
  7. HUMULIN R [Concomitant]
     Active Substance: INSULIN HUMAN
  8. LISINOPRIL [Concomitant]
     Active Substance: LISINOPRIL
  9. MONTELUKAST [Concomitant]
     Active Substance: MONTELUKAST SODIUM
  10. OXYCODONE [Concomitant]
     Active Substance: OXYCODONE
  11. OXYCONTIN [Concomitant]
     Active Substance: OXYCODONE HYDROCHLORIDE
  12. FERROUS SULFATE [Concomitant]
     Active Substance: FERROUS SULFATE
     Indication: Blood erythropoietin abnormal
     Dates: start: 20210914

REACTIONS (2)
  - Urinary tract infection [Recovered/Resolved]
  - Blood urine present [Recovered/Resolved]
